FAERS Safety Report 16040877 (Version 1)
Quarter: 2019Q1

REPORT INFORMATION
  Report Type: Report from Study
  Country: None (occurrence: US)
  Receive Date: 20190306
  Receipt Date: 20190306
  Transmission Date: 20190418
  Serious: Yes (Other)
  Sender: FDA-Public Use
  Company Number: US-ABBVIE-19K-163-2686068-00

PATIENT
  Sex: Female

DRUGS (2)
  1. HUMIRA [Suspect]
     Active Substance: ADALIMUMAB
     Indication: PSORIATIC ARTHROPATHY
     Route: 058
  2. HUMIRA [Suspect]
     Active Substance: ADALIMUMAB
     Indication: RHEUMATOID ARTHRITIS

REACTIONS (10)
  - Headache [Recovered/Resolved]
  - Frequent bowel movements [Unknown]
  - Condition aggravated [Unknown]
  - Musculoskeletal disorder [Not Recovered/Not Resolved]
  - Ingrowing nail [Unknown]
  - Medical device implantation [Unknown]
  - Influenza like illness [Recovered/Resolved]
  - Weight decreased [Unknown]
  - Psoriatic arthropathy [Unknown]
  - Abdominal discomfort [Unknown]
